FAERS Safety Report 19048924 (Version 1)
Quarter: 2021Q1

REPORT INFORMATION
  Report Type: Spontaneous
  Country: US (occurrence: US)
  Receive Date: 20210323
  Receipt Date: 20210323
  Transmission Date: 20210420
  Serious: No
  Sender: FDA-Public Use
  Company Number: US-GALDERMA-US2021000152

PATIENT
  Sex: Female

DRUGS (6)
  1. DIFFERIN GEL [Suspect]
     Active Substance: ADAPALENE
     Indication: ACNE
     Dosage: 0.1%
     Route: 061
     Dates: start: 1990
  2. DIFFERIN GEL [Suspect]
     Active Substance: ADAPALENE
     Dosage: 0.1%
     Route: 061
     Dates: start: 2020, end: 202011
  3. CETAPHIL PRO OIL REMOVE FOAM WASH (COSMETICS) [Suspect]
     Active Substance: COSMETICS
     Indication: PRODUCT USED FOR UNKNOWN INDICATION
     Route: 061
     Dates: start: 2020
  4. ADDERALL (AMPHETAMINE) [Concomitant]
     Indication: PRODUCT USED FOR UNKNOWN INDICATION
     Route: 065
  5. DIFFERIN GEL [Suspect]
     Active Substance: ADAPALENE
     Dosage: 0.1%
     Route: 061
     Dates: start: 202012
  6. PRISTIQ (DESVENLAFAXINE) [Concomitant]
     Indication: PRODUCT USED FOR UNKNOWN INDICATION
     Route: 065

REACTIONS (6)
  - Off label use [Recovered/Resolved]
  - Dry skin [Recovered/Resolved]
  - Eyelid skin dryness [Recovered/Resolved]
  - Acne [Unknown]
  - Intentional underdose [Recovered/Resolved]
  - Eyelid function disorder [Not Recovered/Not Resolved]

NARRATIVE: CASE EVENT DATE: 2020
